FAERS Safety Report 12663955 (Version 2)
Quarter: 2016Q3

REPORT INFORMATION
  Report Type: Spontaneous
  Country: US (occurrence: US)
  Receive Date: 20160818
  Receipt Date: 20160819
  Transmission Date: 20161109
  Serious: Yes (Hospitalization)
  Sender: FDA-Public Use
  Company Number: US-PFIZER INC-2016387315

PATIENT
  Age: 37 Year
  Sex: Male
  Weight: 78.93 kg

DRUGS (2)
  1. DILANTIN [Suspect]
     Active Substance: PHENYTOIN
     Indication: SEIZURE
     Dosage: 500 MG DAILY (100MG CAPSULE, TWO IN THE MORNING AND THREE AT NIGHT)
     Route: 048
     Dates: start: 2005
  2. KEPPRA [Suspect]
     Active Substance: LEVETIRACETAM
     Indication: SEIZURE
     Dosage: 750 MG, 2X/DAY (750MG ONE IN THE MORNING AND ONE AT NIGHT)
     Dates: start: 201605, end: 201607

REACTIONS (3)
  - Condition aggravated [Not Recovered/Not Resolved]
  - Seizure [Not Recovered/Not Resolved]
  - Fall [Unknown]

NARRATIVE: CASE EVENT DATE: 201607
